FAERS Safety Report 9776336 (Version 1)
Quarter: 2013Q4

REPORT INFORMATION
  Report Type: Spontaneous
  Country: US (occurrence: US)
  Receive Date: 20131220
  Receipt Date: 20131220
  Transmission Date: 20140711
  Serious: Yes (Death, Hospitalization)
  Sender: FDA-Public Use
  Company Number: US-MYLANLABS-2013S1027815

PATIENT
  Age: 53 Year
  Sex: Female

DRUGS (11)
  1. AZATHIOPRINE [Suspect]
     Indication: PERIPHERAL SENSORY NEUROPATHY
     Dosage: 50MG DAILY
     Route: 048
  2. POTASSIUM CHLORIDE [Concomitant]
     Route: 065
  3. RANITIDINE [Concomitant]
     Route: 065
  4. DIGOXIN [Concomitant]
     Route: 065
  5. FUROSEMIDE [Concomitant]
     Route: 065
  6. METHYLPREDNISOLONE [Concomitant]
     Indication: SYSTEMIC LUPUS ERYTHEMATOSUS
     Dosage: 4MG DAILY
     Route: 065
  7. GABAPENTIN [Concomitant]
     Route: 065
  8. RISEDRONIC ACID [Concomitant]
     Route: 065
  9. BENAZEPRIL [Concomitant]
     Route: 065
  10. CLOPIDOGREL [Concomitant]
     Route: 065
  11. VITAMIN D [Concomitant]
     Route: 065

REACTIONS (11)
  - Aplastic anaemia [Fatal]
  - Staphylococcal infection [Not Recovered/Not Resolved]
  - Candida infection [Not Recovered/Not Resolved]
  - Bacteroides infection [Not Recovered/Not Resolved]
  - Zygomycosis [Not Recovered/Not Resolved]
  - Respiratory failure [Not Recovered/Not Resolved]
  - Pulmonary alveolar haemorrhage [Not Recovered/Not Resolved]
  - Pancytopenia [Not Recovered/Not Resolved]
  - Diffuse alopecia [Not Recovered/Not Resolved]
  - Febrile neutropenia [Not Recovered/Not Resolved]
  - Cardiac murmur [Unknown]
